FAERS Safety Report 6967602-X (Version None)
Quarter: 2010Q3

REPORT INFORMATION
  Report Type: 
  Country: None (occurrence: None)
  Receive Date: 20100907
  Receipt Date: 20100901
  Transmission Date: 20110219
  Serious: Yes (Other)
  Sender: FDA-Public Use
  Company Number: US-ROXANE LABORATORIES, INC.-2010-RO-01174RO

PATIENT
  Age: 22 Year
  Sex: Male

DRUGS (5)
  1. CYCLOPHOSPHAMIDE [Suspect]
     Indication: BONE MARROW CONDITIONING REGIMEN
     Route: 042
  2. BUSULFAN [Suspect]
     Indication: BONE MARROW CONDITIONING REGIMEN
     Route: 042
  3. HEPARIN [Suspect]
     Indication: PROPHYLAXIS
     Route: 042
  4. GLUTAMINE [Suspect]
     Indication: PROPHYLAXIS
     Route: 048
  5. URSODIOL [Suspect]
     Indication: PROPHYLAXIS
     Route: 048

REACTIONS (1)
  - VENOOCCLUSIVE LIVER DISEASE [None]
